FAERS Safety Report 6470399-3 (Version None)
Quarter: 2009Q4

REPORT INFORMATION
  Report Type: 
  Country: None (occurrence: None)
  Receive Date: 20091203
  Receipt Date: 20091130
  Transmission Date: 20100525
  Serious: Yes (Death, Hospitalization)
  Sender: FDA-Public Use
  Company Number: US-BRISTOL-MYERS SQUIBB COMPANY-14838700

PATIENT
  Age: 80 Year
  Sex: Male

DRUGS (15)
  1. PACLITAXEL [Suspect]
     Indication: NON-SMALL CELL LUNG CANCER
     Dosage: EVERY 3 WEEKS
     Route: 042
     Dates: start: 20090924
  2. CARBOPLATIN [Suspect]
     Indication: NON-SMALL CELL LUNG CANCER
     Dosage: EVERY 3 WEEKS
     Route: 042
     Dates: start: 20090924
  3. CP-751,871 [Suspect]
     Indication: NON-SMALL CELL LUNG CANCER
     Dosage: EVERY 3 WEEKS
     Route: 042
     Dates: start: 20090924
  4. ADVAIR DISKUS 100/50 [Concomitant]
     Dosage: 1 DF = 500/50NG, 1 PUFF
  5. FLONASE [Concomitant]
     Indication: HYPERSENSITIVITY
  6. LASIX [Concomitant]
     Indication: DIURETIC THERAPY
  7. METOPROLOL TARTRATE [Concomitant]
     Indication: ARRHYTHMIA
  8. MIRALAX [Concomitant]
     Indication: CONSTIPATION
     Dosage: 4-8 OUNCES WATER
  9. PLAVIX [Concomitant]
     Indication: COAGULOPATHY
  10. POTASSIUM CHLORIDE [Concomitant]
     Indication: SUPPLEMENTATION THERAPY
  11. MULTI-VITAMINS [Concomitant]
     Dosage: 1 DF = TAB
  12. SINGULAIR [Concomitant]
  13. SPIRIVA [Concomitant]
     Dosage: 1 DF = 1 PUFF
     Route: 055
  14. TYLENOL (CAPLET) [Concomitant]
     Indication: PAIN
  15. VIAGRA [Concomitant]
     Indication: ERECTILE DYSFUNCTION

REACTIONS (1)
  - PNEUMONIA [None]
